FAERS Safety Report 9630848 (Version 1)
Quarter: 2013Q4

REPORT INFORMATION
  Report Type: Spontaneous
  Country: US (occurrence: None)
  Receive Date: 20131015
  Receipt Date: 20131015
  Transmission Date: 20140711
  Serious: Yes (Hospitalization)
  Sender: FDA-Public Use
  Company Number: ACO_38879_2013

PATIENT
  Age: 64 Year
  Sex: Female

DRUGS (1)
  1. AMPRYA [Suspect]
     Indication: PRODUCT USED FOR UNKNOWN INDICATION
     Dates: start: 20121024

REACTIONS (2)
  - Anxiety [None]
  - Oedema peripheral [None]
